FAERS Safety Report 8487839-0 (Version None)
Quarter: 2012Q3

REPORT INFORMATION
  Report Type: 
  Country: None (occurrence: None)
  Receive Date: 20120705
  Receipt Date: 20120627
  Transmission Date: 20120928
  Serious: Yes (Death)
  Sender: FDA-Public Use
  Company Number: US-PFIZER INC-2012157731

PATIENT
  Sex: Male

DRUGS (1)
  1. SUTENT [Suspect]
     Indication: BONE NEOPLASM MALIGNANT
     Dosage: 25 MG, 12.5 MG
     Dates: start: 20120323

REACTIONS (1)
  - DEATH [None]
